FAERS Safety Report 8110083-3 (Version None)
Quarter: 2012Q1

REPORT INFORMATION
  Report Type: 
  Country: None (occurrence: None)
  Receive Date: 20120202
  Receipt Date: 20120104
  Transmission Date: 20120608
  Serious: Yes (Death)
  Sender: FDA-Public Use
  Company Number: US-COVIDIEN/TYCO HEALTHCARE/MALLINCKRODT-T201200117

PATIENT
  Sex: Female

DRUGS (9)
  1. FLUOXETINE [Suspect]
     Dosage: UNK
  2. OLANZAPINE [Suspect]
     Dosage: UNK
  3. CLONAZEPAM [Suspect]
     Dosage: UNK
  4. TEMAZEPAM [Suspect]
     Dosage: UNK
  5. ZOLPIDEM [Suspect]
     Dosage: UNK
  6. MORPHINE [Suspect]
  7. OXCARBAZEPINE [Suspect]
  8. SERTRALINE HYDROCHLORIDE [Suspect]
     Dosage: UNK
  9. LORAZEPAM [Suspect]
     Dosage: UNK

REACTIONS (2)
  - COMPLETED SUICIDE [None]
  - CARDIO-RESPIRATORY ARREST [None]
